FAERS Safety Report 9000586 (Version 3)
Quarter: 2013Q2

REPORT INFORMATION
  Report Type: Spontaneous
  Country: US (occurrence: US)
  Receive Date: 20130107
  Receipt Date: 20130625
  Transmission Date: 20140414
  Serious: Yes (Other)
  Sender: FDA-Public Use
  Company Number: US-PFIZER INC-2013005089

PATIENT
  Age: 53 Year
  Sex: Female
  Weight: 140 kg

DRUGS (13)
  1. CHANTIX [Suspect]
     Indication: SMOKING CESSATION THERAPY
     Dosage: 0.5 MG, 1X/DAY
     Route: 048
     Dates: start: 20121201, end: 201212
  2. CHANTIX [Suspect]
     Dosage: UNK
     Route: 048
     Dates: start: 201212
  3. CHANTIX [Suspect]
     Dosage: 1 MG, 2X/DAY
     Route: 048
     Dates: start: 201212, end: 2013
  4. ALBUTEROL [Concomitant]
     Indication: CHRONIC OBSTRUCTIVE PULMONARY DISEASE
     Dosage: UNK, AS NEEDED
     Route: 055
  5. POTASSIUM [Concomitant]
     Indication: CARDIAC FAILURE CONGESTIVE
     Dosage: 40 MEQ, 3X/DAY (TAKING TWO 20MEQ AT A TIME)
  6. LASIX [Concomitant]
     Indication: CARDIAC FAILURE CONGESTIVE
     Dosage: 160 MG, 4X/DAY (TAKING TWO 80 MG AT A TIME)
  7. SYNTHROID [Concomitant]
     Indication: HYPOTHYROIDISM
     Dosage: 150 UG, DAILY
  8. LORTAB [Concomitant]
     Indication: PAIN
     Dosage: HYDROCODONE BITARTRATE 10MG/ACETAMINOPHEN 500MG, 5X/DAY
  9. PLAVIX [Concomitant]
     Indication: PERIPHERAL ARTERIAL OCCLUSIVE DISEASE
     Dosage: 75 MG, DAILY
  10. ASPIRIN [Concomitant]
     Indication: PERIPHERAL ARTERIAL OCCLUSIVE DISEASE
     Dosage: 81 MG, DAILY
  11. ASPIRIN [Concomitant]
     Indication: MYOCARDIAL INFARCTION
  12. REQUIP [Concomitant]
     Indication: RESTLESS LEGS SYNDROME
     Dosage: 5 MG, DAILY
  13. PREDNISONE [Concomitant]
     Indication: DEMYELINATING POLYNEUROPATHY
     Dosage: 20 MG, 2X/DAY

REACTIONS (10)
  - Weight increased [Unknown]
  - Malaise [Not Recovered/Not Resolved]
  - Insomnia [Unknown]
  - Muscular weakness [Not Recovered/Not Resolved]
  - Myalgia [Not Recovered/Not Resolved]
  - Local swelling [Unknown]
  - Abdominal discomfort [Unknown]
  - Haemoglobin decreased [Unknown]
  - Increased appetite [Unknown]
  - Blood pressure abnormal [Unknown]
